FAERS Safety Report 18535608 (Version 1)
Quarter: 2020Q4

REPORT INFORMATION
  Report Type: Spontaneous
  Country: CN (occurrence: CN)
  Receive Date: 20201123
  Receipt Date: 20201123
  Transmission Date: 20210114
  Serious: Yes (Disabling)
  Sender: FDA-Public Use
  Company Number: CN-CELGENEUS-CHN-20201103930

PATIENT
  Age: 62 Year
  Sex: Male

DRUGS (7)
  1. SODIUM CHLORIDE. [Concomitant]
     Active Substance: SODIUM CHLORIDE
     Dosage: 40 MILLILITER
     Route: 041
     Dates: start: 20201027, end: 20201027
  2. SODIUM CHLORIDE. [Concomitant]
     Active Substance: SODIUM CHLORIDE
     Indication: PRODUCT USED FOR UNKNOWN INDICATION
     Dosage: 500 MILLILITER
     Route: 041
     Dates: start: 20201027, end: 20201027
  3. ABRAXANE [Suspect]
     Active Substance: PACLITAXEL
     Indication: OESOPHAGEAL CARCINOMA
     Dosage: 200 MILLIGRAM
     Route: 041
     Dates: start: 20201027, end: 20201027
  4. JIE BAI SHU [Suspect]
     Active Substance: NEDAPLATIN
     Indication: OESOPHAGEAL CARCINOMA
     Dosage: 100 MILLIGRAM
     Route: 041
     Dates: start: 20201027, end: 20201027
  5. SINTILIMAB. [Suspect]
     Active Substance: SINTILIMAB
     Indication: OESOPHAGEAL CARCINOMA
     Dosage: 200 MILLIGRAM
     Route: 041
     Dates: start: 20201027, end: 20201027
  6. SODIUM CHLORIDE. [Concomitant]
     Active Substance: SODIUM CHLORIDE
     Dosage: 100 MILLILITER
     Route: 041
     Dates: start: 20201027, end: 20201027
  7. ABRAXANE [Suspect]
     Active Substance: PACLITAXEL
     Indication: OFF LABEL USE

REACTIONS (1)
  - Myelosuppression [Recovering/Resolving]

NARRATIVE: CASE EVENT DATE: 20201103
